FAERS Safety Report 8012811-4 (Version None)
Quarter: 2011Q4

REPORT INFORMATION
  Report Type: 
  Country: None (occurrence: None)
  Receive Date: 20111229
  Receipt Date: 20111219
  Transmission Date: 20120403
  Serious: Yes (Hospitalization)
  Sender: FDA-Public Use
  Company Number: JP-BRISTOL-MYERS SQUIBB COMPANY-16305054

PATIENT
  Age: 26 Year
  Sex: Female
  Weight: 43 kg

DRUGS (1)
  1. DASATINIB [Suspect]
     Indication: CHRONIC MYELOID LEUKAEMIA

REACTIONS (3)
  - ENTEROCOLITIS HAEMORRHAGIC [None]
  - PLEURISY [None]
  - CYTOMEGALOVIRUS ENTEROCOLITIS [None]
